FAERS Safety Report 9846608 (Version 2)
Quarter: 2014Q1

REPORT INFORMATION
  Report Type: Spontaneous
  Country: US (occurrence: US)
  Receive Date: 20140127
  Receipt Date: 20140226
  Transmission Date: 20141002
  Serious: Yes (Hospitalization)
  Sender: FDA-Public Use
  Company Number: US-GLAXOSMITHKLINE-A1058331A

PATIENT
  Age: 47 Year
  Sex: Male

DRUGS (1)
  1. ARIXTRA [Suspect]
     Indication: ILL-DEFINED DISORDER
     Dosage: 2.5MG UNKNOWN
     Dates: start: 20131231

REACTIONS (2)
  - Investigation [Unknown]
  - Surgery [Unknown]
